FAERS Safety Report 7423890-7 (Version None)
Quarter: 2011Q2

REPORT INFORMATION
  Report Type: 
  Country: None (occurrence: None)
  Receive Date: 20110419
  Receipt Date: 20110414
  Transmission Date: 20111010
  Serious: Yes (Hospitalization)
  Sender: FDA-Public Use
  Company Number: A0860403A

PATIENT
  Age: 37 Year
  Sex: Male
  Weight: 84.1 kg

DRUGS (8)
  1. PREDNISONE [Suspect]
     Indication: PRODUCT USED FOR UNKNOWN INDICATION
     Dates: start: 20070427
  2. METOPROLOL [Concomitant]
  3. PAROXETINE HYDROCHLORIDE [Suspect]
     Indication: ANXIETY
     Route: 048
     Dates: end: 20070101
  4. ASPIRIN [Concomitant]
  5. AUGMENTIN [Suspect]
     Indication: BRONCHITIS
     Route: 048
     Dates: start: 20070427
  6. PAXIL CR [Suspect]
     Indication: DEPRESSION
     Dosage: 25MG AT NIGHT
     Route: 048
     Dates: start: 20050101, end: 20070514
  7. PAXIL [Suspect]
     Indication: ANXIETY
     Dosage: 20MG AT NIGHT
     Route: 048
     Dates: start: 20070514, end: 20070101
  8. LUNESTA [Suspect]
     Indication: PRODUCT USED FOR UNKNOWN INDICATION
     Route: 048

REACTIONS (32)
  - IMPRISONMENT [None]
  - STRESS AT WORK [None]
  - IMPULSE-CONTROL DISORDER [None]
  - DIZZINESS [None]
  - LOSS OF CONSCIOUSNESS [None]
  - HOMICIDAL IDEATION [None]
  - LACERATION [None]
  - SUPRAVENTRICULAR TACHYCARDIA [None]
  - VENTRICULAR TACHYCARDIA [None]
  - CARDIOMYOPATHY [None]
  - DIASTOLIC HYPERTENSION [None]
  - PALPITATIONS [None]
  - TRICUSPID VALVE INCOMPETENCE [None]
  - DILATATION VENTRICULAR [None]
  - DEPRESSION [None]
  - ROAD TRAFFIC ACCIDENT [None]
  - ALCOHOL ABUSE [None]
  - CARDIAC FLUTTER [None]
  - DRUG INTERACTION [None]
  - PARTNER STRESS [None]
  - JUDGEMENT IMPAIRED [None]
  - RIGHT ATRIAL DILATATION [None]
  - MYOCARDIAL INFARCTION [None]
  - PSYCHOTIC DISORDER [None]
  - IMPAIRED WORK ABILITY [None]
  - ALCOHOL USE [None]
  - BRONCHITIS [None]
  - SUICIDAL IDEATION [None]
  - ACTIVITIES OF DAILY LIVING IMPAIRED [None]
  - MITRAL VALVE INCOMPETENCE [None]
  - PULMONARY VALVE INCOMPETENCE [None]
  - LEFT VENTRICULAR DYSFUNCTION [None]
